FAERS Safety Report 10240281 (Version 1)
Quarter: 2014Q2

REPORT INFORMATION
  Report Type: Spontaneous
  Country: BR (occurrence: BR)
  Receive Date: 20140617
  Receipt Date: 20140617
  Transmission Date: 20141212
  Serious: No
  Sender: FDA-Public Use
  Company Number: PHHY2014BR070516

PATIENT
  Age: 66 Year
  Sex: Female

DRUGS (1)
  1. FORASEQ [Suspect]
     Indication: ASTHMA
     Dosage: UNK UKN, UNK (2 DF FOR STRONG CRISIS OR 1 DF FOR NOT STRONG CRISIS)
     Dates: start: 2012

REACTIONS (2)
  - Asthmatic crisis [Recovering/Resolving]
  - Expired product administered [Unknown]
